FAERS Safety Report 11649942 (Version 4)
Quarter: 2016Q2

REPORT INFORMATION
  Report Type: Spontaneous
  Country: US (occurrence: US)
  Receive Date: 20151021
  Receipt Date: 20160418
  Transmission Date: 20160815
  Serious: No
  Sender: FDA-Public Use
  Company Number: US-WATSON-2015-19185

PATIENT
  Age: 49 Year
  Sex: Female

DRUGS (3)
  1. OXYCODONE-ACETAMINOPHEN (AELLC) [Suspect]
     Active Substance: ACETAMINOPHEN\OXYCODONE HYDROCHLORIDE
     Indication: BACK PAIN
     Dosage: 10MG/325MG, UNK
     Route: 048
     Dates: start: 20150810
  2. ADDERALL [Concomitant]
     Active Substance: AMPHETAMINE ASPARTATE\AMPHETAMINE SULFATE\DEXTROAMPHETAMINE SACCHARATE\DEXTROAMPHETAMINE SULFATE
     Indication: ATTENTION DEFICIT/HYPERACTIVITY DISORDER
     Dosage: 75 MG, TWO IN THE MORNING, ONE IN THE AFTERNOON
     Route: 048
     Dates: start: 2005
  3. OXYCODONE-ACETAMINOPHEN (AELLC) [Suspect]
     Active Substance: ACETAMINOPHEN\OXYCODONE HYDROCHLORIDE
     Dosage: UNKNOWN
     Route: 048

REACTIONS (19)
  - Dyspnoea [Not Recovered/Not Resolved]
  - Oropharyngeal pain [Not Recovered/Not Resolved]
  - Drug ineffective [Not Recovered/Not Resolved]
  - Dyskinesia [Unknown]
  - Polyuria [Unknown]
  - Wrong technique in product usage process [Unknown]
  - Headache [Not Recovered/Not Resolved]
  - Product substitution issue [Not Recovered/Not Resolved]
  - Somnolence [Not Recovered/Not Resolved]
  - Dehydration [Not Recovered/Not Resolved]
  - Nasal congestion [Not Recovered/Not Resolved]
  - Dry mouth [Not Recovered/Not Resolved]
  - Heart rate increased [None]
  - Hypoglycaemia [Unknown]
  - Nasal discomfort [Not Recovered/Not Resolved]
  - Abdominal distension [Unknown]
  - Ocular hyperaemia [Not Recovered/Not Resolved]
  - Diarrhoea [Not Recovered/Not Resolved]
  - Hunger [Unknown]

NARRATIVE: CASE EVENT DATE: 20150810
